FAERS Safety Report 12421877 (Version 6)
Quarter: 2019Q1

REPORT INFORMATION
  Report Type: Spontaneous
  Country: US (occurrence: US)
  Receive Date: 20160531
  Receipt Date: 20190325
  Transmission Date: 20190417
  Serious: Yes (Hospitalization, Other)
  Sender: FDA-Public Use
  Company Number: US-DSJP-DSU-2016-107340

PATIENT

DRUGS (19)
  1. SEROQUEL [Concomitant]
     Active Substance: QUETIAPINE FUMARATE
     Indication: PRODUCT USED FOR UNKNOWN INDICATION
     Dosage: 300 MG, BID
     Route: 048
  2. PLAVIX [Concomitant]
     Active Substance: CLOPIDOGREL BISULFATE
     Indication: PRODUCT USED FOR UNKNOWN INDICATION
     Dosage: 75 MG, QD
     Route: 048
  3. CHANTIX [Concomitant]
     Active Substance: VARENICLINE TARTRATE
     Indication: TOBACCO ABUSE
     Dosage: 0.5 MG, AS NEEDED
     Route: 048
  4. CHANTIX [Concomitant]
     Active Substance: VARENICLINE TARTRATE
     Dosage: 1 MG, BID
     Route: 048
  5. AMLODIPINE [Concomitant]
     Active Substance: AMLODIPINE BESYLATE
     Indication: HYPERTENSION
     Dosage: 10 MG, QD
     Route: 048
  6. METOPROLOL TARTRATE. [Concomitant]
     Active Substance: METOPROLOL TARTRATE
     Indication: PRODUCT USED FOR UNKNOWN INDICATION
     Dosage: 0.5 DF, BID
     Route: 048
  7. FLOMAX [Concomitant]
     Active Substance: TAMSULOSIN HYDROCHLORIDE
     Indication: PRODUCT USED FOR UNKNOWN INDICATION
     Dosage: 0.4 MG, QD
     Route: 048
  8. DULCOLAX (BISACODYL) [Suspect]
     Active Substance: BISACODYL
     Indication: ABDOMINAL PAIN
     Dosage: UNK
     Dates: start: 201311, end: 201311
  9. ASPIRIN                            /00002701/ [Concomitant]
     Active Substance: ASPIRIN
     Indication: CAROTID ARTERY STENOSIS
     Dosage: 325 MG, QD
     Route: 048
  10. ALBUTEROL                          /00139501/ [Concomitant]
     Active Substance: ALBUTEROL
     Indication: EMPHYSEMA
     Dosage: UNK, AS NEEDED
     Route: 045
  11. VITAMIN D                          /00107901/ [Concomitant]
     Active Substance: ERGOCALCIFEROL
     Indication: VITAMIN D DEFICIENCY
     Dosage: 50000 IU, ONCE EVERY 1 WK
     Route: 048
  12. BENICAR HCT [Suspect]
     Active Substance: HYDROCHLOROTHIAZIDE\OLMESARTAN MEDOXOMIL
     Indication: HYPERTENSION
     Dosage: 40MG/25 MG, QD
     Route: 048
     Dates: start: 20110817
  13. PERCOCET                           /00446701/ [Concomitant]
     Active Substance: ACETAMINOPHEN\OXYCODONE HYDROCHLORIDE\OXYCODONE TEREPHTHALATE
     Indication: PAIN
     Dosage: 5- 325 MG, ONCE EVERY 4HR
     Route: 048
  14. EZETIMIBE. [Concomitant]
     Active Substance: EZETIMIBE
     Indication: HYPERLIPIDAEMIA
     Dosage: 10 MG, QD
     Route: 048
  15. LIPITOR [Concomitant]
     Active Substance: ATORVASTATIN CALCIUM
     Indication: PRODUCT USED FOR UNKNOWN INDICATION
     Dosage: 80 MG, QD
     Route: 048
  16. CHANTIX [Concomitant]
     Active Substance: VARENICLINE TARTRATE
     Dosage: 0.5 MG, QD
     Route: 048
  17. CHANTIX [Concomitant]
     Active Substance: VARENICLINE TARTRATE
     Dosage: 0.5 MG, BID
     Route: 048
  18. BENICAR [Suspect]
     Active Substance: OLMESARTAN MEDOXOMIL
     Indication: HYPERTENSION
     Dosage: UNK
     Dates: start: 2009
  19. PERCOCET                           /00446701/ [Concomitant]
     Active Substance: ACETAMINOPHEN\OXYCODONE HYDROCHLORIDE\OXYCODONE TEREPHTHALATE
     Indication: ARTHRALGIA

REACTIONS (10)
  - Hypotension [Unknown]
  - Vitamin D deficiency [Unknown]
  - Pneumonia [Unknown]
  - Diarrhoea [Unknown]
  - Cholelithiasis [Unknown]
  - Sprue-like enteropathy [Recovering/Resolving]
  - Liver function test increased [Unknown]
  - Acute kidney injury [Recovering/Resolving]
  - Small intestinal obstruction [Recovering/Resolving]
  - Abdominal hernia [Recovered/Resolved]

NARRATIVE: CASE EVENT DATE: 20100331
